FAERS Safety Report 25136264 (Version 2)
Quarter: 2025Q1

REPORT INFORMATION
  Report Type: Spontaneous
  Country: US (occurrence: US)
  Receive Date: 20250328
  Receipt Date: 20250331
  Transmission Date: 20250409
  Serious: No
  Sender: PFIZER
  Company Number: US-PFIZER INC-202500065168

PATIENT
  Age: 12 Year
  Sex: Male
  Weight: 39.92 kg

DRUGS (1)
  1. GENOTROPIN [Suspect]
     Active Substance: SOMATROPIN
     Indication: Short stature
     Dosage: 2.2 MG, 1X/DAY
     Route: 058

REACTIONS (2)
  - Device mechanical issue [Unknown]
  - Drug dose omission by device [Unknown]
